FAERS Safety Report 18916638 (Version 2)
Quarter: 2021Q1

REPORT INFORMATION
  Report Type: Spontaneous
  Country: US (occurrence: US)
  Receive Date: 20210219
  Receipt Date: 20210304
  Transmission Date: 20210420
  Serious: Yes (Hospitalization, Other)
  Sender: FDA-Public Use
  Company Number: US-PFIZER INC-2021136678

PATIENT
  Age: 60 Year
  Sex: Female

DRUGS (5)
  1. PREDNISONE. [Suspect]
     Active Substance: PREDNISONE
     Indication: PERICARDITIS
     Dosage: 20 MG, 2X/DAY, (0.5 MG/KG/DAY)
  2. FLUDARABINE PHOSPHATE. [Suspect]
     Active Substance: FLUDARABINE PHOSPHATE
     Indication: DISEASE RECURRENCE
     Dosage: 0.5 MG/KG, 1X/DAY
  3. PREDNISONE. [Suspect]
     Active Substance: PREDNISONE
     Dosage: 10 MG, 1X/DAY
  4. PREDNISONE. [Suspect]
     Active Substance: PREDNISONE
     Indication: GRAFT VERSUS HOST DISEASE IN GASTROINTESTINAL TRACT
     Dosage: UNK (TAPERED OFF DRUG THREE TIMES)
  5. MELPHALAN. [Suspect]
     Active Substance: MELPHALAN
     Indication: DISEASE RECURRENCE
     Dosage: 0.5 MG/KG, 1X/DAY

REACTIONS (3)
  - Acetabulum fracture [Recovered/Resolved]
  - Stress fracture [Recovered/Resolved]
  - Osteonecrosis [Recovered/Resolved]
